FAERS Safety Report 18724545 (Version 1)
Quarter: 2021Q1

REPORT INFORMATION
  Report Type: Spontaneous
  Country: US (occurrence: US)
  Receive Date: 20210111
  Receipt Date: 20210111
  Transmission Date: 20210419
  Serious: Yes (Hospitalization)
  Sender: FDA-Public Use
  Company Number: None

PATIENT
  Age: 71 Year
  Sex: Male
  Weight: 74.39 kg

DRUGS (2)
  1. APIXABAN (APIXABAN 5MG TAB) [Suspect]
     Active Substance: APIXABAN
     Indication: DEEP VEIN THROMBOSIS
     Route: 048
     Dates: start: 20191025, end: 20191206
  2. IBUPROFEN (IBUPROFEN 600MG TAB) [Suspect]
     Active Substance: IBUPROFEN
     Indication: PAIN
     Route: 048
     Dates: start: 20191206, end: 20191206

REACTIONS (5)
  - Therapy interrupted [None]
  - Anaemia [None]
  - Gastric haemorrhage [None]
  - Cyst [None]
  - Treatment noncompliance [None]

NARRATIVE: CASE EVENT DATE: 20191206
